FAERS Safety Report 6822254-4 (Version None)
Quarter: 2010Q3

REPORT INFORMATION
  Report Type: 
  Country: None (occurrence: None)
  Receive Date: 20100708
  Receipt Date: 20100629
  Transmission Date: 20110219
  Serious: Yes (Hospitalization, Other)
  Sender: FDA-Public Use
  Company Number: CA-ASTRAZENECA-2010SE27987

PATIENT
  Age: 59 Year
  Sex: Female

DRUGS (4)
  1. CRESTOR [Suspect]
     Route: 048
     Dates: start: 20090101
  2. NORVASC [Concomitant]
     Indication: HYPERTENSION
     Route: 048
  3. RAMIPRIL [Concomitant]
  4. ASPIRIN [Concomitant]

REACTIONS (3)
  - CYTOLYTIC HEPATITIS [None]
  - HEPATIC ENZYME INCREASED [None]
  - HEPATITIS [None]
